FAERS Safety Report 12341649 (Version 2)
Quarter: 2016Q2

REPORT INFORMATION
  Report Type: Spontaneous
  Country: IT (occurrence: IT)
  Receive Date: 20160506
  Receipt Date: 20160524
  Transmission Date: 20160815
  Serious: Yes (Other)
  Sender: FDA-Public Use
  Company Number: IT-009507513-1504ITA013004

PATIENT
  Age: 90 Year
  Sex: Female

DRUGS (4)
  1. THERAPY UNSPECIFIED [Suspect]
     Active Substance: UNSPECIFIED INGREDIENT
     Dosage: UNK
  2. TEICOPLANIN [Concomitant]
     Active Substance: TEICOPLANIN
     Indication: ENDOCARDITIS STAPHYLOCOCCAL
     Dosage: 400 MG, FIRST 24 HOURS
     Route: 065
     Dates: start: 20120421, end: 20120421
  3. TEICOPLANIN [Concomitant]
     Active Substance: TEICOPLANIN
     Dosage: 200 MG/DAY FROM THE SECOND DAY
     Route: 065
     Dates: start: 20120422, end: 20120424
  4. VANCOMYCIN [Concomitant]
     Active Substance: VANCOMYCIN
     Indication: ENDOCARDITIS STAPHYLOCOCCAL
     Dosage: 1000 MG, QD
     Route: 065
     Dates: start: 20120425, end: 20120502

REACTIONS (1)
  - Drug resistance [Unknown]

NARRATIVE: CASE EVENT DATE: 20120429
